FAERS Safety Report 4883733-2 (Version None)
Quarter: 2006Q1

REPORT INFORMATION
  Report Type: 
  Country: None (occurrence: None)
  Receive Date: 20060118
  Receipt Date: 20050919
  Transmission Date: 20060701
  Serious: Yes (Hospitalization)
  Sender: FDA-Public Use
  Company Number: JP-ROCHE-418080

PATIENT
  Age: 52 Year
  Sex: Male

DRUGS (17)
  1. SAQUINAVIR [Suspect]
     Indication: HIV INFECTION
     Route: 048
     Dates: start: 19990517, end: 19990721
  2. SAQUINAVIR [Suspect]
     Route: 048
     Dates: start: 19990722, end: 19991107
  3. SAQUINAVIR [Suspect]
     Route: 048
     Dates: start: 19991108
  4. NELFINAVIR [Suspect]
     Indication: ACQUIRED IMMUNODEFICIENCY SYNDROME
     Route: 048
     Dates: start: 19970801, end: 19991121
  5. STAVUDINE [Suspect]
     Indication: ACQUIRED IMMUNODEFICIENCY SYNDROME
     Route: 048
     Dates: start: 19970801, end: 19990516
  6. STAVUDINE [Suspect]
     Route: 048
     Dates: start: 19990517, end: 20010331
  7. EFAVIRENZ [Suspect]
     Indication: HIV INFECTION
     Route: 048
     Dates: start: 19990517
  8. LAMIVUDINE [Suspect]
     Indication: ACQUIRED IMMUNODEFICIENCY SYNDROME
     Route: 048
     Dates: start: 19970618, end: 19991121
  9. RITONAVIR [Suspect]
     Indication: HIV INFECTION
     Route: 048
     Dates: start: 19970517, end: 19990721
  10. RITONAVIR [Suspect]
     Route: 048
     Dates: start: 19990722, end: 19991108
  11. RITONAVIR [Suspect]
     Route: 048
     Dates: start: 19991108
  12. CLARITHROMYCIN [Suspect]
     Indication: MYCOBACTERIUM AVIUM COMPLEX INFECTION
     Route: 048
     Dates: start: 19970604, end: 20020805
  13. ETHAMBUTOL HCL [Suspect]
     Indication: MYCOBACTERIUM AVIUM COMPLEX INFECTION
     Route: 048
     Dates: start: 19940615, end: 20020805
  14. ACYCLOVIR [Concomitant]
     Dates: start: 19940615, end: 20030706
  15. BROTIZOLAM [Concomitant]
     Dates: start: 19970901, end: 20040406
  16. FLUCONAZOLE [Concomitant]
     Dates: start: 19970801
  17. SULFAMETHOXAZOLE + TRIMETHOPRIM [Concomitant]
     Dates: start: 19960615, end: 20030706

REACTIONS (6)
  - ALANINE AMINOTRANSFERASE INCREASED [None]
  - BLOOD ALKALINE PHOSPHATASE INCREASED [None]
  - BLOOD LACTATE DEHYDROGENASE INCREASED [None]
  - BLOOD TRIGLYCERIDES INCREASED [None]
  - CHOLECYSTITIS [None]
  - HEPATIC FUNCTION ABNORMAL [None]
